FAERS Safety Report 13801057 (Version 1)
Quarter: 2017Q3

REPORT INFORMATION
  Report Type: Spontaneous
  Country: CA (occurrence: CA)
  Receive Date: 20170727
  Receipt Date: 20170727
  Transmission Date: 20171127
  Serious: Yes (Hospitalization, Other)
  Sender: FDA-Public Use
  Company Number: CA-PFIZER INC-2017321616

PATIENT
  Age: 79 Year
  Sex: Male

DRUGS (3)
  1. ACCURETIC [Concomitant]
     Active Substance: HYDROCHLOROTHIAZIDE\QUINAPRIL HYDROCHLORIDE
     Dosage: 20 MG, 1X/DAY
     Route: 048
     Dates: start: 201702, end: 20170220
  2. DILANTIN [Suspect]
     Active Substance: PHENYTOIN
     Indication: SEIZURE
     Dosage: 2 DF, 1X/DAY
     Route: 048
     Dates: start: 19960616
  3. ACCURETIC [Concomitant]
     Active Substance: HYDROCHLOROTHIAZIDE\QUINAPRIL HYDROCHLORIDE
     Dosage: 40 MG, UNK
     Route: 048
     Dates: end: 201702

REACTIONS (7)
  - Fall [Unknown]
  - Type 2 diabetes mellitus [Unknown]
  - Pneumonia [Unknown]
  - Bacterial infection [Unknown]
  - Amnesia [Unknown]
  - Pneumonia aspiration [Unknown]
  - Cataract [Unknown]

NARRATIVE: CASE EVENT DATE: 20080329
